FAERS Safety Report 8075678-4 (Version None)
Quarter: 2012Q1

REPORT INFORMATION
  Report Type: 
  Country: None (occurrence: None)
  Receive Date: 20120127
  Receipt Date: 20120123
  Transmission Date: 20120608
  Serious: Yes (Hospitalization)
  Sender: FDA-Public Use
  Company Number: DE-SANOFI-AVENTIS-2012SA004892

PATIENT
  Age: 51 Year
  Sex: Female
  Weight: 92 kg

DRUGS (8)
  1. UROMITEXAN [Concomitant]
     Route: 042
     Dates: start: 20110208, end: 20110208
  2. DEXAMETHASONE [Concomitant]
     Indication: PREMEDICATION
     Route: 048
     Dates: start: 20110207, end: 20110210
  3. DOCETAXEL [Suspect]
     Indication: BREAST CANCER
     Route: 041
     Dates: start: 20110208, end: 20110208
  4. KEVATRIL [Concomitant]
     Indication: PREMEDICATION
     Dates: start: 20110208, end: 20110208
  5. UROMITEXAN [Concomitant]
     Indication: PREMEDICATION
     Route: 048
     Dates: start: 20110208, end: 20110208
  6. CYCLOPHOSPHAMIDE [Suspect]
     Indication: BREAST CANCER
     Route: 041
     Dates: start: 20110208, end: 20110208
  7. EMEND [Concomitant]
     Indication: PREMEDICATION
     Route: 048
     Dates: start: 20110208, end: 20110210
  8. METOCLOPRAMIDE [Concomitant]
     Indication: PREMEDICATION
     Route: 048
     Dates: start: 20110209, end: 20110210

REACTIONS (2)
  - NEUTROPHIL PERCENTAGE INCREASED [None]
  - LEUKOCYTOSIS [None]
